FAERS Safety Report 23240966 (Version 1)
Quarter: 2023Q4

REPORT INFORMATION
  Report Type: Spontaneous
  Country: FR (occurrence: FR)
  Receive Date: 20231129
  Receipt Date: 20231129
  Transmission Date: 20240109
  Serious: Yes (Hospitalization)
  Sender: FDA-Public Use
  Company Number: FR-BAYER-2023A168087

PATIENT
  Age: 38 Year
  Sex: Female
  Weight: 71 kg

DRUGS (1)
  1. NIFURTIMOX [Suspect]
     Active Substance: NIFURTIMOX
     Dosage: 15 MG/KG, TID
     Route: 048

REACTIONS (2)
  - Meningitis aseptic [None]
  - Meningitis trypanosomal [None]
